FAERS Safety Report 6540888-1 (Version None)
Quarter: 2010Q1

REPORT INFORMATION
  Report Type: 
  Country: None (occurrence: None)
  Receive Date: 20100118
  Receipt Date: 20100113
  Transmission Date: 20100710
  Serious: Yes (Death)
  Sender: FDA-Public Use
  Company Number: PHHY2010KR01791

PATIENT
  Sex: Male

DRUGS (2)
  1. EXJADE [Suspect]
     Indication: MYELODYSPLASTIC SYNDROME
     Dosage: 500 MG/DAY
     Route: 048
     Dates: start: 20081016, end: 20091117
  2. EXJADE [Suspect]
     Indication: IRON OVERLOAD

REACTIONS (1)
  - DEATH [None]
